FAERS Safety Report 6809334-4 (Version None)
Quarter: 2010Q2

REPORT INFORMATION
  Report Type: 
  Country: None (occurrence: None)
  Receive Date: 20100630
  Receipt Date: 20100618
  Transmission Date: 20101027
  Serious: Yes (Other)
  Sender: FDA-Public Use
  Company Number: US-ELI_LILLY_AND_COMPANY-US201006005416

PATIENT
  Age: 53 Year
  Sex: Male
  Weight: 84.354 kg

DRUGS (11)
  1. PROZAC [Suspect]
     Indication: MENTAL DISORDER
     Dosage: UNK, UNKNOWN
  2. PROZAC [Suspect]
     Dosage: 40 MG, DAILY (1/D)
     Route: 048
  3. CHANTIX                            /05703001/ [Concomitant]
     Indication: SMOKING CESSATION THERAPY
     Dosage: 0.5 MG, 2/D
     Route: 048
     Dates: start: 20091007, end: 20091013
  4. AMITRIPTYLINE [Concomitant]
     Indication: MENTAL DISORDER
     Dosage: UNK, UNKNOWN
  5. AMITRIPTYLINE [Concomitant]
     Dosage: 25 MG, DAILY (1/D)
     Route: 048
  6. SOMA [Concomitant]
     Indication: MUSCLE SPASMS
     Dosage: 350 MG, EVERY 6 HRS
  7. OXYCODONE HCL [Concomitant]
     Indication: PAIN
     Dosage: 15 MG, EVERY 6 HRS
  8. RESTORIL [Concomitant]
     Indication: SLEEP DISORDER
     Dosage: 30 MG, DAILY (1/D)
  9. XANAX [Concomitant]
     Indication: ANXIETY
     Dosage: 1 MG, 2/D
  10. ADVAIR DISKUS 100/50 [Concomitant]
     Indication: CHRONIC OBSTRUCTIVE PULMONARY DISEASE
     Dosage: 100 MG, 2/D
  11. SPIRIVA [Concomitant]
     Indication: CHRONIC OBSTRUCTIVE PULMONARY DISEASE
     Dosage: UNK, UNKNOWN

REACTIONS (9)
  - CONFUSIONAL STATE [None]
  - FEELING ABNORMAL [None]
  - HEPATITIS C [None]
  - INTERVERTEBRAL DISC OPERATION [None]
  - IRRITABILITY [None]
  - NERVOUSNESS [None]
  - POTENTIATING DRUG INTERACTION [None]
  - SUICIDAL IDEATION [None]
  - SURGERY [None]
